FAERS Safety Report 17734115 (Version 1)
Quarter: 2020Q2

REPORT INFORMATION
  Report Type: Other
  Country: US (occurrence: US)
  Receive Date: 20200501
  Receipt Date: 20200501
  Transmission Date: 20200714
  Serious: Yes (Other)
  Sender: FDA-Public Use
  Company Number: US-VITRUVIAS THERAPEUTICS-2083417

PATIENT
  Age: 30 Year
  Sex: Female
  Weight: 67 kg

DRUGS (3)
  1. LIDOCAINE. [Suspect]
     Active Substance: LIDOCAINE
     Route: 008
  2. FENTANYL. [Concomitant]
     Active Substance: FENTANYL
     Route: 008
  3. ROPIVACAINE HCL [Concomitant]
     Active Substance: ROPIVACAINE HYDROCHLORIDE
     Route: 008

REACTIONS (1)
  - Horner^s syndrome [Recovered/Resolved]
